FAERS Safety Report 7368774-8 (Version None)
Quarter: 2011Q1

REPORT INFORMATION
  Report Type: 
  Country: None (occurrence: None)
  Receive Date: 20110314
  Receipt Date: 20110225
  Transmission Date: 20110831
  Serious: Yes (Hospitalization)
  Sender: FDA-Public Use
  Company Number: DSA_45114_2011

PATIENT
  Age: 65 Year
  Sex: Female

DRUGS (8)
  1. AMARYL [Concomitant]
  2. METFORMIN HCL [Suspect]
     Indication: TYPE 2 DIABETES MELLITUS
     Dosage: (1 G TID ORAL)
     Route: 048
  3. SOMAC [Concomitant]
  4. METOPROLOL [Concomitant]
  5. RENITEC COMP. (RENITEC COMP - ENALAPRIL- MALEATE + HYDROCHLOROTHIAZIDE [Suspect]
     Indication: HYPERTENSION
     Dosage: (20MG/12.5MG (AS REPORTED) ONCE A DAY ORAL)
     Route: 048
  6. LASIX [Concomitant]
  7. PROBENECID [Concomitant]
  8. SIMVASTATIN [Concomitant]

REACTIONS (6)
  - LACTIC ACIDOSIS [None]
  - RENAL FAILURE [None]
  - DIARRHOEA [None]
  - GASTROENTERITIS [None]
  - VOMITING [None]
  - ANURIA [None]
